FAERS Safety Report 14336782 (Version 6)
Quarter: 2018Q3

REPORT INFORMATION
  Report Type: Spontaneous
  Country: GB (occurrence: GB)
  Receive Date: 20171229
  Receipt Date: 20180817
  Transmission Date: 20181010
  Serious: Yes (Life-Threatening, Other)
  Sender: FDA-Public Use
  Company Number: GB-TEVA-2017-GB-836697

PATIENT
  Age: 44 Year
  Sex: Male

DRUGS (5)
  1. VINCRISTINE [Suspect]
     Active Substance: VINCRISTINE
     Indication: ACUTE LYMPHOCYTIC LEUKAEMIA
     Route: 065
     Dates: start: 201710, end: 20171101
  2. ARIPIPRAZOLE. [Concomitant]
     Active Substance: ARIPIPRAZOLE
     Dosage: 450 MILLIGRAM DAILY;
     Route: 065
  3. DEXAMETHASONE. [Concomitant]
     Active Substance: DEXAMETHASONE
     Indication: ACUTE LYMPHOCYTIC LEUKAEMIA
     Route: 065
     Dates: start: 20171004
  4. DAUNORUBICIN [Suspect]
     Active Substance: DAUNORUBICIN
     Indication: ACUTE LYMPHOCYTIC LEUKAEMIA
     Route: 065
     Dates: start: 201710, end: 20171101
  5. ZAPONEX [Suspect]
     Active Substance: CLOZAPINE
     Dosage: 440 MILLIGRAM DAILY;
     Route: 048
     Dates: start: 20070601, end: 20180614

REACTIONS (11)
  - Platelet count decreased [Not Recovered/Not Resolved]
  - Neutropenia [Recovered/Resolved]
  - Thrombocytopenia [Not Recovered/Not Resolved]
  - Agranulocytosis [Recovered/Resolved]
  - Acute lymphocytic leukaemia [Not Recovered/Not Resolved]
  - Agranulocytosis [Recovered/Resolved]
  - White blood cell count decreased [Recovered/Resolved]
  - Leukopenia [Recovered/Resolved]
  - Neutrophil count decreased [Recovered/Resolved]
  - Eosinophil count increased [Recovered/Resolved]
  - Contraindicated product administered [Not Recovered/Not Resolved]

NARRATIVE: CASE EVENT DATE: 201709
